FAERS Safety Report 5140464-1 (Version None)
Quarter: 2006Q4

REPORT INFORMATION
  Report Type: 
  Country: None (occurrence: None)
  Receive Date: 20061025
  Receipt Date: 20061025
  Transmission Date: 20070319
  Serious: Yes (Other)
  Sender: FDA-Public Use
  Company Number: None

PATIENT
  Age: 75 Year
  Sex: Male
  Weight: 66.4 kg

DRUGS (9)
  1. RISPERIDONE [Suspect]
     Indication: SCHIZOPHRENIA, PARANOID TYPE
     Dosage: 4MG QHS PO
     Route: 048
     Dates: start: 20060816, end: 20060925
  2. RISPERIDONE ORALLY DISINTEGRATING TABLETS [Suspect]
     Indication: SCHIZOPHRENIA, PARANOID TYPE
     Dosage: 25MG Q2WEEKS IM
     Route: 030
     Dates: start: 20060908, end: 20060925
  3. ASPIRIN [Concomitant]
  4. DOCUSATE NA [Concomitant]
  5. MULTI VIT [Concomitant]
  6. ACETAMINOPHEN [Concomitant]
  7. MAALOX FAST BLOCKER [Concomitant]
  8. MOM [Concomitant]
  9. THIAMINE [Concomitant]

REACTIONS (2)
  - DIABETES MELLITUS [None]
  - WEIGHT INCREASED [None]
